FAERS Safety Report 6709546-4 (Version None)
Quarter: 2010Q2

REPORT INFORMATION
  Report Type: 
  Country: None (occurrence: None)
  Receive Date: 20100503
  Receipt Date: 20100503
  Transmission Date: 20101027
  Serious: No
  Sender: FDA-Public Use
  Company Number: None

PATIENT
  Age: 53 Year
  Sex: Female
  Weight: 90.7194 kg

DRUGS (2)
  1. SERTRALINE HCL [Suspect]
  2. SERTRALINE HCL [Suspect]

REACTIONS (3)
  - ANXIETY [None]
  - HEADACHE [None]
  - PRODUCT SUBSTITUTION ISSUE [None]
